FAERS Safety Report 18344858 (Version 1)
Quarter: 2020Q4

REPORT INFORMATION
  Report Type: Spontaneous
  Country: US (occurrence: US)
  Receive Date: 20201005
  Receipt Date: 20201005
  Transmission Date: 20210114
  Serious: Yes (Hospitalization, Other)
  Sender: FDA-Public Use
  Company Number: US-PURDUE-USA-2020-0167364

PATIENT
  Age: 60 Year
  Sex: Male

DRUGS (4)
  1. OXYCODONE HYDROCHLORIDE (SIMILAR TO NDA 22-272) [Suspect]
     Active Substance: OXYCODONE HYDROCHLORIDE
     Indication: PRODUCT USED FOR UNKNOWN INDICATION
     Dosage: UNK
     Route: 048
     Dates: start: 200607, end: 2017
  2. OXYCODONE/ ACETAMINOPHEN TABLETS [Suspect]
     Active Substance: ACETAMINOPHEN\OXYCODONE HYDROCHLORIDE
     Indication: DETOXIFICATION
     Dosage: 5-325 MG
     Route: 048
  3. MORPHINE SULFATE (SIMILAR TO NDA 19-516) [Suspect]
     Active Substance: MORPHINE SULFATE
     Indication: PAIN
     Dosage: UNK
     Route: 048
  4. OXYCODONE HCL TABLETS (RHODES 91-490) [Suspect]
     Active Substance: OXYCODONE HYDROCHLORIDE
     Indication: PRODUCT USED FOR UNKNOWN INDICATION
     Dosage: UNK
     Route: 048

REACTIONS (14)
  - Balance disorder [Unknown]
  - Pain [Unknown]
  - Depression [Unknown]
  - Headache [Unknown]
  - Chills [Unknown]
  - Judgement impaired [Unknown]
  - Hyperhidrosis [Unknown]
  - Sexual dysfunction [Unknown]
  - Insomnia [Unknown]
  - Anxiety [Unknown]
  - Drug dependence [Unknown]
  - Memory impairment [Unknown]
  - Palpitations [Unknown]
  - Finger amputation [Unknown]

NARRATIVE: CASE EVENT DATE: 20120804
